FAERS Safety Report 10373168 (Version 2)
Quarter: 2014Q3

REPORT INFORMATION
  Report Type: Spontaneous
  Country: US (occurrence: US)
  Receive Date: 20140808
  Receipt Date: 20140808
  Transmission Date: 20150326
  Serious: No
  Sender: FDA-Public Use
  Company Number: US-BRISTOL-MYERS SQUIBB COMPANY-20122958

PATIENT
  Age: 46 Year
  Sex: Female

DRUGS (1)
  1. SPRYCEL (CML) TABS 50 MG [Suspect]
     Active Substance: DASATINIB
     Indication: CHRONIC MYELOID LEUKAEMIA
     Route: 048
     Dates: start: 20120410

REACTIONS (9)
  - Headache [Unknown]
  - Myalgia [Unknown]
  - Tendon pain [Unknown]
  - Dyspnoea [Unknown]
  - Body temperature fluctuation [Unknown]
  - Nausea [Unknown]
  - Swelling [Unknown]
  - Vision blurred [Unknown]
  - Abdominal distension [Unknown]

NARRATIVE: CASE EVENT DATE: 20140102
